FAERS Safety Report 23586911 (Version 1)
Quarter: 2024Q1

REPORT INFORMATION
  Report Type: Spontaneous
  Country: PL (occurrence: PL)
  Receive Date: 20240301
  Receipt Date: 20240301
  Transmission Date: 20240410
  Serious: Yes (Disabling, Other)
  Sender: FDA-Public Use
  Company Number: PL-EMA-20161017-ashishvp-092350139

PATIENT
  Age: 46 Year
  Sex: Female

DRUGS (12)
  1. DOCETAXEL [Suspect]
     Active Substance: DOCETAXEL\DOCETAXEL ANHYDROUS
     Indication: Gastric neoplasm
  2. DOCETAXEL [Suspect]
     Active Substance: DOCETAXEL\DOCETAXEL ANHYDROUS
     Indication: Breast neoplasm
     Dosage: UNK
     Dates: start: 2011, end: 201406
  3. CYCLOPHOSPHAMIDE [Suspect]
     Active Substance: CYCLOPHOSPHAMIDE
     Indication: Gastric neoplasm
     Dosage: UNK
     Dates: start: 2011, end: 201406
  4. CYCLOPHOSPHAMIDE [Suspect]
     Active Substance: CYCLOPHOSPHAMIDE
     Indication: Breast neoplasm
  5. METHOTREXATE [Suspect]
     Active Substance: METHOTREXATE
     Indication: Gastric neoplasm
  6. METHOTREXATE [Suspect]
     Active Substance: METHOTREXATE
     Indication: Breast neoplasm
     Dosage: UNK
     Dates: start: 201406
  7. LETROZOLE [Suspect]
     Active Substance: LETROZOLE
     Indication: Gastric neoplasm
     Dosage: UNK
     Dates: start: 2011, end: 201406
  8. LETROZOLE [Suspect]
     Active Substance: LETROZOLE
     Indication: Breast neoplasm
  9. TAMOXIFEN CITRATE [Suspect]
     Active Substance: TAMOXIFEN CITRATE
     Indication: Breast neoplasm
     Dosage: UNK
     Dates: start: 2011, end: 201406
  10. TAMOXIFEN CITRATE [Suspect]
     Active Substance: TAMOXIFEN CITRATE
     Indication: Gastric neoplasm
  11. DOXORUBICIN [Suspect]
     Active Substance: DOXORUBICIN
     Indication: Breast neoplasm
     Dosage: UNK
     Dates: start: 2011, end: 201406
  12. DOXORUBICIN [Suspect]
     Active Substance: DOXORUBICIN
     Indication: Gastric neoplasm

REACTIONS (9)
  - Visual impairment [Unknown]
  - Metastases to bone [Unknown]
  - Blindness [Not Recovered/Not Resolved]
  - Breast cancer metastatic [Unknown]
  - Disease progression [Unknown]
  - Dizziness [Unknown]
  - Malignant neoplasm progression [Unknown]
  - Headache [Unknown]
  - Drug ineffective [Unknown]

NARRATIVE: CASE EVENT DATE: 20110101
